FAERS Safety Report 8410109-3 (Version None)
Quarter: 2012Q2

REPORT INFORMATION
  Report Type: 
  Country: None (occurrence: None)
  Receive Date: 20120605
  Receipt Date: 20120601
  Transmission Date: 20120825
  Serious: Yes (Life-Threatening, Hospitalization)
  Sender: FDA-Public Use
  Company Number: ES-ABBOTT-12P-144-0933953-00

PATIENT
  Age: 73 Year
  Sex: Female

DRUGS (6)
  1. TRAMADOL HCL [Suspect]
     Indication: OSTEOARTHRITIS
     Route: 048
     Dates: start: 20111207, end: 20111213
  2. DEPAKENE [Suspect]
     Indication: BIPOLAR DISORDER
     Route: 048
     Dates: start: 20110308, end: 20111213
  3. ESCITALOPRAM [Suspect]
     Indication: BIPOLAR DISORDER
     Route: 048
     Dates: start: 20111107, end: 20111213
  4. PANTOPRAZOLE [Suspect]
     Indication: PROPHYLAXIS
     Route: 048
     Dates: start: 20110711, end: 20111213
  5. TRAMADOL HYDROCHLORIDE AND ACETAMINOPHEN [Suspect]
     Indication: OSTEOARTHRITIS
     Route: 048
     Dates: start: 20110701, end: 20111213
  6. FLUVASTATIN [Suspect]
     Indication: DYSLIPIDAEMIA
     Route: 048
     Dates: start: 20110309, end: 20111213

REACTIONS (2)
  - RHABDOMYOLYSIS [None]
  - HYPERCREATININAEMIA [None]
